FAERS Safety Report 8395525-0 (Version None)
Quarter: 2012Q2

REPORT INFORMATION
  Report Type: 
  Country: None (occurrence: None)
  Receive Date: 20120530
  Receipt Date: 20110607
  Transmission Date: 20120825
  Serious: No
  Sender: FDA-Public Use
  Company Number: US-GLAXOSMITHKLINE-A0930615A

PATIENT
  Age: 86 Year
  Sex: Male

DRUGS (4)
  1. VENTOLIN [Suspect]
     Indication: COUGH
     Dosage: 2PUFF FOUR TIMES PER DAY
     Route: 055
     Dates: start: 20110603, end: 20110604
  2. NORVASC [Concomitant]
  3. SPIRONOLACTONE [Concomitant]
  4. LIPITOR [Concomitant]

REACTIONS (4)
  - HEART RATE INCREASED [None]
  - ASTHENIA [None]
  - FEELING ABNORMAL [None]
  - BLOOD PRESSURE DECREASED [None]
